FAERS Safety Report 17367840 (Version 1)
Quarter: 2020Q1

REPORT INFORMATION
  Report Type: Spontaneous
  Country: US (occurrence: US)
  Receive Date: 20200203
  Receipt Date: 20200203
  Transmission Date: 20200409
  Serious: No
  Sender: FDA-Public Use
  Company Number: None

PATIENT
  Age: 14 Year
  Sex: Male

DRUGS (8)
  1. SODIUM CHLORIDE 7% NEBS [Concomitant]
  2. TOBRAMYCIN 300MG/5ML [Concomitant]
     Active Substance: TOBRAMYCIN
  3. VENTOLIN HFA INH [Concomitant]
  4. SYMBICORT 160/4.5 MCG INH [Concomitant]
  5. AZITHROMYCIN 500MG [Concomitant]
     Active Substance: AZITHROMYCIN
  6. ZENPEP 25000 IU [Concomitant]
  7. TRIKAFTA [Suspect]
     Active Substance: ELEXACAFTOR\IVACAFTOR\TEZACAFTOR
     Indication: CYSTIC FIBROSIS
     Route: 048
  8. PULMOZYME [Concomitant]
     Active Substance: DORNASE ALFA

REACTIONS (1)
  - Abdominal pain [None]

NARRATIVE: CASE EVENT DATE: 20200113
